FAERS Safety Report 8455658-7 (Version None)
Quarter: 2012Q2

REPORT INFORMATION
  Report Type: 
  Country: None (occurrence: None)
  Receive Date: 20120613
  Receipt Date: 20120530
  Transmission Date: 20120825
  Serious: Yes (Other)
  Sender: FDA-Public Use
  Company Number: GB-1192516

PATIENT
  Age: 28 Day
  Sex: Male

DRUGS (6)
  1. CYCLOPENTOLATE HCL [Suspect]
     Dosage: (THREE TIMES DAILY OPHTHALMIC)
     Route: 047
  2. LATANOPROST [Suspect]
  3. AZARGA OPHTHALMIC SUSPENSION (AZARGA) [Suspect]
     Dosage: (TWICE DAILY OPHTHALMIC)
     Route: 047
  4. DEXAMETHASONE SODIUM PHOSPHATE [Suspect]
     Dosage: (EVERY 2 HOURS OPHTHALMIC)
     Route: 047
  5. PREDNISOLONE [Suspect]
     Dosage: (4 TIMES DAILY OPHTHALMIC)
     Route: 047
  6. CHLORAMPHENICOL [Suspect]
     Dosage: (4 TIMES DAILY OPHTHALMIC)
     Route: 047

REACTIONS (2)
  - DRUG INEFFECTIVE [None]
  - INTRAOCULAR PRESSURE INCREASED [None]
